FAERS Safety Report 15129094 (Version 1)
Quarter: 2018Q3

REPORT INFORMATION
  Report Type: Spontaneous
  Country: US (occurrence: US)
  Receive Date: 20180614
  Receipt Date: 20180614
  Transmission Date: 20181010
  Serious: Yes (Other)
  Sender: FDA-Public Use
  Company Number: None

PATIENT
  Age: 41 Year
  Sex: Female
  Weight: 69.75 kg

DRUGS (3)
  1. OMEGA 3 [Concomitant]
     Active Substance: OMEGA-3 FATTY ACIDS
  2. FLONASE [Concomitant]
     Active Substance: FLUTICASONE PROPIONATE
  3. XYZAL [Suspect]
     Active Substance: LEVOCETIRIZINE DIHYDROCHLORIDE
     Indication: MULTIPLE ALLERGIES
     Dosage: ?          QUANTITY:1 DF DOSAGE FORM;?
     Route: 048
     Dates: start: 20080102, end: 20180612

REACTIONS (5)
  - Scratch [None]
  - Haemorrhage [None]
  - Extra dose administered [None]
  - Drug dose omission [None]
  - Pruritus generalised [None]

NARRATIVE: CASE EVENT DATE: 20180614
